FAERS Safety Report 5043844-8 (Version None)
Quarter: 2006Q2

REPORT INFORMATION
  Report Type: 
  Country: None (occurrence: None)
  Receive Date: 20060629
  Receipt Date: 20060620
  Transmission Date: 20061013
  Serious: Yes (Hospitalization, Other)
  Sender: FDA-Public Use
  Company Number: 2006-06-0324

PATIENT
  Age: 37 Year
  Sex: Female

DRUGS (3)
  1. NASONEX [Suspect]
     Indication: RHINITIS
     Dosage: SEE IMAGE
     Route: 045
     Dates: start: 20060603, end: 20060605
  2. NASONEX [Suspect]
     Indication: RHINITIS
     Dosage: SEE IMAGE
     Route: 045
     Dates: start: 20060101
  3. NASONEX [Suspect]
     Indication: RHINITIS
     Dosage: SEE IMAGE
     Route: 045
     Dates: start: 20060603

REACTIONS (3)
  - BLOOD PRESSURE DIASTOLIC DECREASED [None]
  - HYPERTENSION [None]
  - RESPIRATORY DEPRESSION [None]
